FAERS Safety Report 17375892 (Version 1)
Quarter: 2020Q1

REPORT INFORMATION
  Report Type: Spontaneous
  Country: US (occurrence: US)
  Receive Date: 20200206
  Receipt Date: 20200206
  Transmission Date: 20200409
  Serious: Yes (Life-Threatening, Hospitalization)
  Sender: FDA-Public Use
  Company Number: US-SCIEGEN PHARMACEUTICALS INC-2020SCILIT00022

PATIENT
  Age: 71 Year
  Sex: Female

DRUGS (5)
  1. EPINEPHRINE. [Interacting]
     Active Substance: EPINEPHRINE
  2. ANTIHISTAMINE [Interacting]
     Active Substance: ANTIHISTAMINES NOS
  3. HYDROCHLOROTHIAZIDE TABLETS [Suspect]
     Active Substance: HYDROCHLOROTHIAZIDE
  4. PREDNISONE. [Interacting]
     Active Substance: PREDNISONE
  5. BROAD-SPECTRUM ANTIBIOTIC [Interacting]
     Active Substance: UNSPECIFIED INGREDIENT

REACTIONS (5)
  - Pruritus [Recovering/Resolving]
  - Wheezing [Recovering/Resolving]
  - Dyspnoea [Recovering/Resolving]
  - Hyperhidrosis [Recovering/Resolving]
  - Procalcitonin increased [Recovering/Resolving]
